FAERS Safety Report 20165626 (Version 2)
Quarter: 2022Q1

REPORT INFORMATION
  Report Type: Report from Study
  Country: GB (occurrence: GB)
  Receive Date: 20211209
  Receipt Date: 20220103
  Transmission Date: 20220423
  Serious: Yes (Other)
  Sender: FDA-Public Use
  Company Number: GB-SAMSUNG BIOEPIS-SB-2021-20209

PATIENT
  Age: 73 Year
  Sex: Female

DRUGS (3)
  1. IMRALDI [Suspect]
     Active Substance: ADALIMUMAB
     Indication: Juvenile idiopathic arthritis
     Route: 058
     Dates: start: 20210802
  2. IMRALDI [Suspect]
     Active Substance: ADALIMUMAB
     Indication: Arthritis
  3. ETANERCEPT [Suspect]
     Active Substance: ETANERCEPT
     Indication: Product used for unknown indication
     Dosage: UNKNOWN
     Route: 065

REACTIONS (8)
  - Lymphoma [Recovered/Resolved]
  - Spinal fracture [Unknown]
  - Fracture [Unknown]
  - Vomiting [Recovered/Resolved]
  - Pain [Unknown]
  - Ill-defined disorder [Unknown]
  - Drug intolerance [Unknown]
  - Product use in unapproved indication [Unknown]
